FAERS Safety Report 5341618-1 (Version None)
Quarter: 2007Q2

REPORT INFORMATION
  Report Type: 
  Country: None (occurrence: None)
  Receive Date: 20070601
  Receipt Date: 20070523
  Transmission Date: 20071010
  Serious: Yes (Hospitalization, Other)
  Sender: FDA-Public Use
  Company Number: CA-JNJFOC-20061005287

PATIENT
  Sex: Female

DRUGS (12)
  1. REMICADE [Suspect]
     Route: 042
  2. REMICADE [Suspect]
     Route: 042
  3. REMICADE [Suspect]
     Indication: RHEUMATOID ARTHRITIS
     Route: 042
  4. METHOTREXATE SODIUM [Concomitant]
     Route: 048
  5. LEUCOVORIN CALCIUM [Concomitant]
     Route: 048
  6. DESIPRAMINE HCL [Concomitant]
     Route: 048
  7. FOSAMAX [Concomitant]
  8. METOPROLOL SUCCINATE [Concomitant]
  9. AVAPRO [Concomitant]
  10. MIACALCIN [Concomitant]
     Dosage: 200 UNITS DAILY
     Route: 045
  11. VITAMIN D [Concomitant]
  12. CALCIUM CHLORIDE [Concomitant]

REACTIONS (1)
  - HIP FRACTURE [None]
